FAERS Safety Report 8198919-1 (Version None)
Quarter: 2012Q1

REPORT INFORMATION
  Report Type: 
  Country: None (occurrence: None)
  Receive Date: 20120309
  Receipt Date: 20120227
  Transmission Date: 20120608
  Serious: No
  Sender: FDA-Public Use
  Company Number: US-AMGEN-USASP2012007731

PATIENT
  Age: 71 Year
  Sex: Female
  Weight: 82.086 kg

DRUGS (10)
  1. METOPROLOL SUCCINATE [Concomitant]
     Dosage: 50 MG, BID
  2. KLOR-CON [Concomitant]
     Dosage: 20 MG, BID
  3. PROLIA [Suspect]
     Indication: OSTEOPOROSIS POSTMENOPAUSAL
     Dosage: 60 MG, UNK
     Route: 058
     Dates: start: 20120202
  4. SIMVASTATIN [Concomitant]
     Dosage: 40 MG, UNK
  5. BENICAR [Concomitant]
     Dosage: UNK
  6. RAMIPRIL [Concomitant]
     Dosage: 5 MG, UNK
  7. OMEPRAZOLE [Concomitant]
     Dosage: 20 MG, UNK
  8. CALCIUM CITRATE [Concomitant]
     Dosage: 200 MG, UNK
  9. ASPIRIN [Concomitant]
     Dosage: 81 MG, UNK
  10. VITAMIN TAB [Concomitant]

REACTIONS (2)
  - ARTHRALGIA [None]
  - BACK PAIN [None]
